FAERS Safety Report 19921475 (Version 1)
Quarter: 2021Q4

REPORT INFORMATION
  Report Type: Spontaneous
  Country: CN (occurrence: CN)
  Receive Date: 20211005
  Receipt Date: 20211005
  Transmission Date: 20220303
  Serious: Yes (Hospitalization)
  Sender: FDA-Public Use
  Company Number: CN-CELGENE-CHN-20210907787

PATIENT
  Age: 41 Year
  Sex: Female

DRUGS (2)
  1. ABRAXANE [Suspect]
     Active Substance: PACLITAXEL
     Indication: Ovarian cancer
     Dosage: 100 MILLIGRAM
     Route: 041
     Dates: start: 20210817, end: 20210824
  2. CARBOPLATIN [Concomitant]
     Active Substance: CARBOPLATIN
     Indication: Ovarian cancer
     Dosage: 150 MILLIGRAM
     Route: 041
     Dates: start: 20210824, end: 20210924

REACTIONS (2)
  - Myelosuppression [Recovering/Resolving]
  - Ovarian cancer recurrent [Unknown]

NARRATIVE: CASE EVENT DATE: 20210824
